FAERS Safety Report 4875295-0 (Version None)
Quarter: 2006Q1

REPORT INFORMATION
  Report Type: 
  Country: None (occurrence: None)
  Receive Date: 20060104
  Receipt Date: 20051229
  Transmission Date: 20060701
  Serious: Yes (Death, Hospitalization)
  Sender: FDA-Public Use
  Company Number: TCI2005A04742

PATIENT
  Age: 81 Year
  Sex: Male

DRUGS (4)
  1. LEUPROLIDE ACETATE [Suspect]
     Indication: PROSTATE CANCER
     Dosage: 11.25 MG (11.25 MG, 1 IN 12 WK) SUBCUTANEOUS
     Route: 058
     Dates: start: 20051104, end: 20051202
  2. CASODEX [Suspect]
     Indication: PROSTATE CANCER
     Dosage: PER ORAL
     Route: 048
     Dates: start: 20051104, end: 20051118
  3. LOXONIN (LOXOPROFEN SODIUM) (PREPARATION FOR ORAL USE (NOS)) [Concomitant]
  4. SELBEX (TEPRENONE) (PREPARATION FOR ORAL USE (NOS)) [Concomitant]

REACTIONS (3)
  - INTERSTITIAL LUNG DISEASE [None]
  - PULMONARY OEDEMA [None]
  - RESPIRATORY ARREST [None]
